FAERS Safety Report 8297526-X (Version None)
Quarter: 2012Q2

REPORT INFORMATION
  Report Type: 
  Country: None (occurrence: None)
  Receive Date: 20120419
  Receipt Date: 20120413
  Transmission Date: 20120825
  Serious: Yes (Hospitalization)
  Sender: FDA-Public Use
  Company Number: PHHY2012IT024999

PATIENT
  Sex: Male

DRUGS (6)
  1. SIMVASTATIN [Concomitant]
     Indication: HYPERCHOLESTEROLAEMIA
  2. COTAREG ^NOVARTIS^ [Concomitant]
     Indication: HYPERTENSION
     Dosage: 80 MG, UNK
     Route: 048
  3. FELODIPINE [Concomitant]
     Indication: HYPERTENSION
     Dosage: 5 MG, UNK
     Route: 048
  4. OXCARBAZEPINE [Suspect]
     Indication: EPILEPSY
     Dosage: 900 MG DAILY
     Route: 048
     Dates: start: 20120223, end: 20120304
  5. LEVOTHYROXINE SODIUM [Concomitant]
     Indication: HYPOTHYROIDISM
     Dosage: 75 UG, UNK
     Route: 048
  6. CALCIUM CARBONATE [Concomitant]
     Indication: OSTEOPOROSIS
     Dosage: 1 G, UNK

REACTIONS (3)
  - BLOOD CHLORIDE DECREASED [None]
  - HYPONATRAEMIA [None]
  - CONFUSIONAL STATE [None]
